FAERS Safety Report 6984580-8 (Version None)
Quarter: 2010Q3

REPORT INFORMATION
  Report Type: 
  Country: None (occurrence: None)
  Receive Date: 20100915
  Receipt Date: 20100910
  Transmission Date: 20110219
  Serious: Yes (Other)
  Sender: FDA-Public Use
  Company Number: US-PFIZER INC-2010115625

PATIENT
  Sex: Male
  Weight: 61.224 kg

DRUGS (2)
  1. GEODON [Suspect]
     Indication: PARANOIA
     Dosage: UNK
     Dates: start: 20100719, end: 20100727
  2. ZYPREXA [Suspect]
     Indication: HALLUCINATION
     Dosage: UNK
     Dates: start: 20100101

REACTIONS (17)
  - BLOOD POTASSIUM ABNORMAL [None]
  - BURNING SENSATION [None]
  - DEHYDRATION [None]
  - DEPRESSION [None]
  - DIARRHOEA [None]
  - DIZZINESS [None]
  - DRUG INTOLERANCE [None]
  - DYSKINESIA [None]
  - GASTROOESOPHAGEAL REFLUX DISEASE [None]
  - HALLUCINATION [None]
  - HALLUCINATION, AUDITORY [None]
  - HYPOAESTHESIA [None]
  - NAUSEA [None]
  - PHOTOPHOBIA [None]
  - SEXUAL DYSFUNCTION [None]
  - VISION BLURRED [None]
  - WEIGHT INCREASED [None]
